FAERS Safety Report 16462894 (Version 1)
Quarter: 2019Q2

REPORT INFORMATION
  Report Type: Spontaneous
  Country: US (occurrence: US)
  Receive Date: 20190621
  Receipt Date: 20190621
  Transmission Date: 20190711
  Serious: Yes (Hospitalization)
  Sender: FDA-Public Use
  Company Number: US-ASTRAZENECA-2019SE88743

PATIENT
  Age: 29613 Day
  Sex: Female
  Weight: 72.6 kg

DRUGS (3)
  1. BRILINTA [Suspect]
     Active Substance: TICAGRELOR
     Indication: ILL-DEFINED DISORDER
     Dosage: TWO TIMES A DAY
     Route: 048
     Dates: start: 20190605
  2. BRILINTA [Suspect]
     Active Substance: TICAGRELOR
     Indication: ANTICOAGULANT THERAPY
     Dosage: TWO TIMES A DAY
     Route: 048
     Dates: start: 20190605
  3. BRILINTA [Suspect]
     Active Substance: TICAGRELOR
     Indication: STENT PLACEMENT
     Dosage: TWO TIMES A DAY
     Route: 048
     Dates: start: 20190605

REACTIONS (7)
  - Fatigue [Not Recovered/Not Resolved]
  - Loss of consciousness [Not Recovered/Not Resolved]
  - Gait inability [Unknown]
  - Blood pressure decreased [Unknown]
  - Dyspnoea [Not Recovered/Not Resolved]
  - Insomnia [Not Recovered/Not Resolved]
  - Panic disorder [Not Recovered/Not Resolved]

NARRATIVE: CASE EVENT DATE: 20190607
